FAERS Safety Report 7310737-2 (Version None)
Quarter: 2011Q1

REPORT INFORMATION
  Report Type: 
  Country: None (occurrence: None)
  Receive Date: 20110224
  Receipt Date: 20110214
  Transmission Date: 20110831
  Serious: Yes (Disabling)
  Sender: FDA-Public Use
  Company Number: PHHY2011GR12061

PATIENT
  Age: 82 Year
  Sex: Female

DRUGS (2)
  1. ACLASTA [Suspect]
     Indication: OSTEOPOROSIS
     Dosage: 5 MG,
     Route: 042
     Dates: start: 20101202
  2. DIURETICS [Concomitant]

REACTIONS (7)
  - SYNOVITIS [None]
  - JOINT EFFUSION [None]
  - PYREXIA [None]
  - PRURITUS [None]
  - ARTHRALGIA [None]
  - ERYTHEMA [None]
  - OEDEMA PERIPHERAL [None]
